FAERS Safety Report 14199708 (Version 2)
Quarter: 2018Q1

REPORT INFORMATION
  Report Type: Report from Study
  Country: JP (occurrence: JP)
  Receive Date: 20171117
  Receipt Date: 20180119
  Transmission Date: 20180508
  Serious: Yes (Hospitalization, Disabling, Other)
  Sender: FDA-Public Use
  Company Number: JP-AMGEN-JPNNI2017154542

PATIENT
  Age: 75 Year
  Sex: Female
  Weight: 51 kg

DRUGS (20)
  1. DARBEPOETIN ALFA [Suspect]
     Active Substance: DARBEPOETIN ALFA
     Indication: IGA NEPHROPATHY
     Dosage: 180 MUG, UNK
     Route: 065
     Dates: start: 20160405
  2. ARTIST [Suspect]
     Active Substance: CARVEDILOL
     Indication: HYPERTENSION
     Dosage: 2.5 MG, UNK
     Route: 048
     Dates: start: 20160322
  3. AMITIZA [Concomitant]
     Active Substance: LUBIPROSTONE
     Indication: CONSTIPATION
     Dosage: 48 MUG, UNK
     Route: 048
     Dates: start: 20160408
  4. WARFARIN [Suspect]
     Active Substance: WARFARIN
     Indication: PROPHYLAXIS
     Dosage: 4 MG, UNK
     Route: 048
     Dates: start: 20150512
  5. WARFARIN [Suspect]
     Active Substance: WARFARIN
     Dosage: 3 MG, UNK
     Route: 048
     Dates: start: 20160722
  6. DIART [Concomitant]
     Active Substance: AZOSEMIDE
     Indication: CARDIAC FAILURE
     Dosage: 60 MG, UNK
     Route: 048
     Dates: start: 20150225, end: 20161109
  7. NATRIX [Concomitant]
     Active Substance: INDAPAMIDE
     Indication: CARDIAC FAILURE
     Dosage: 2 MG, UNK
     Route: 048
     Dates: start: 20160202, end: 20161129
  8. D-SORBITOL [Concomitant]
     Indication: CONSTIPATION PROPHYLAXIS
     Dosage: 20 ML, UNK
     Route: 048
     Dates: start: 20160620, end: 20160715
  9. TEPRENONE [Concomitant]
     Active Substance: TEPRENONE
     Indication: PROPHYLAXIS
     Dosage: 50 MG, UNK
     Route: 048
     Dates: start: 20150717
  10. NEXIUM [Suspect]
     Active Substance: ESOMEPRAZOLE MAGNESIUM
     Indication: PROPHYLAXIS AGAINST GASTROINTESTINAL ULCER
     Dosage: 20 MG, UNK
     Route: 048
     Dates: start: 20160722, end: 20161207
  11. ALOSENN [Suspect]
     Active Substance: SENNA LEAF
     Indication: CONSTIPATION
     Dosage: 0.5 G, AS NECESSARY
     Route: 048
     Dates: start: 20080121, end: 20170110
  12. LENDORMIN [Concomitant]
     Active Substance: BROTIZOLAM
     Indication: INSOMNIA
     Dosage: 0.25 MG, UNK
     Route: 048
     Dates: start: 20150701
  13. ARGAMATE [Concomitant]
     Active Substance: CALCIUM POLYSTYRENE SULFONATE
     Indication: HYPERKALAEMIA
     Dosage: 25 MG, TID
     Route: 048
     Dates: start: 20151110, end: 20161114
  14. MAGNESIUM OXIDE. [Suspect]
     Active Substance: MAGNESIUM OXIDE
     Indication: CONSTIPATION
     Dosage: 750 MG, UNK
     Route: 048
     Dates: start: 20161114, end: 20170105
  15. ARTIST [Suspect]
     Active Substance: CARVEDILOL
     Dosage: 5 MG, UNK
     Route: 048
     Dates: start: 20160322
  16. GLUCOSE [Suspect]
     Active Substance: DEXTROSE
     Indication: MEDICATION DILUTION
     Dosage: 90 ML, UNK
     Route: 041
     Dates: start: 20161115, end: 20161207
  17. HERBESSER [Concomitant]
     Active Substance: DILTIAZEM HYDROCHLORIDE
     Indication: HYPERTENSION
     Dosage: 100 MG, UNK
     Route: 048
     Dates: start: 20160322, end: 20161122
  18. ALESION [Suspect]
     Active Substance: EPINASTINE HYDROCHLORIDE
     Indication: PRURITUS
     Dosage: 20 MG, UNK
     Route: 048
     Dates: start: 20161117, end: 20170209
  19. HEPARIN SODIUM. [Suspect]
     Active Substance: HEPARIN SODIUM
     Indication: PROPHYLAXIS
     Dosage: 10000 IU, UNK
     Route: 065
     Dates: start: 20161115, end: 20161207
  20. FERROUS SULFATE. [Suspect]
     Active Substance: FERROUS SULFATE
     Indication: ANAEMIA
     Dosage: 105 MG, UNK
     Route: 048
     Dates: start: 20161128, end: 20170216

REACTIONS (6)
  - Cardiac failure congestive [Recovering/Resolving]
  - Gastric ulcer haemorrhage [Recovering/Resolving]
  - Carotid artery thrombosis [Recovered/Resolved with Sequelae]
  - Hypercapnia [Not Recovered/Not Resolved]
  - Cardiac failure congestive [Recovering/Resolving]
  - Cardiac failure chronic [Not Recovered/Not Resolved]

NARRATIVE: CASE EVENT DATE: 20160325
